FAERS Safety Report 23687802 (Version 1)
Quarter: 2024Q1

REPORT INFORMATION
  Report Type: Spontaneous
  Country: ZA (occurrence: None)
  Receive Date: 20240329
  Receipt Date: 20240329
  Transmission Date: 20240410
  Serious: Yes (Hospitalization)
  Sender: FDA-Public Use
  Company Number: 2024A073537

PATIENT
  Age: 81 Year
  Sex: Female

DRUGS (5)
  1. BUDESONIDE\FORMOTEROL FUMARATE DIHYDRATE [Suspect]
     Active Substance: BUDESONIDE\FORMOTEROL FUMARATE DIHYDRATE
     Indication: Asthma
     Dosage: 120 DOSE 160/4.5 MCG UNKNOWN
     Route: 055
  2. OMEPRAZOLE [Concomitant]
     Active Substance: OMEPRAZOLE
     Indication: Ulcer
     Route: 048
  3. ASTHAVENT ECOHALER [Concomitant]
     Indication: Asthma
     Dosage: 100.0UG/INHAL UNKNOWN
     Route: 055
  4. PREGABALIN [Concomitant]
     Active Substance: PREGABALIN
     Indication: Pain
     Dosage: 75.0MG UNKNOWN
     Route: 048
  5. FUROSEMIDE [Concomitant]
     Active Substance: FUROSEMIDE
     Indication: Hypertension
     Dosage: 40.0MG UNKNOWN
     Route: 048

REACTIONS (1)
  - Epistaxis [Unknown]
